FAERS Safety Report 14070161 (Version 2)
Quarter: 2017Q4

REPORT INFORMATION
  Report Type: Spontaneous
  Country: KR (occurrence: KR)
  Receive Date: 20171011
  Receipt Date: 20171123
  Transmission Date: 20180321
  Serious: Yes (Other)
  Sender: FDA-Public Use
  Company Number: KR-CIPLA LTD.-2017KR17885

PATIENT

DRUGS (4)
  1. CAPECITABINE. [Concomitant]
     Active Substance: CAPECITABINE
     Indication: PRODUCT USED FOR UNKNOWN INDICATION
     Dosage: 1000 MG/M2, BID, ON DAYS 1-14 EVERY 3 WEEKS
     Route: 065
     Dates: start: 201411
  2. CAPECITABINE. [Concomitant]
     Active Substance: CAPECITABINE
     Dosage: 1500 MG/M2, BID, ON DAYS 1-14 EVERY 3 WEEKS
     Route: 065
  3. OXALIPLATIN. [Suspect]
     Active Substance: OXALIPLATIN
     Indication: PRODUCT USED FOR UNKNOWN INDICATION
     Dosage: 130 MG/M2, ON DAY 1 (CYCLE)
     Route: 065
     Dates: start: 201411
  4. OXALIPLATIN. [Suspect]
     Active Substance: OXALIPLATIN
     Dosage: 190 MG/M2, ON DAY 1 (CYCLE)
     Route: 065

REACTIONS (1)
  - Venoocclusive liver disease [Recovered/Resolved]
